FAERS Safety Report 23754156 (Version 1)
Quarter: 2024Q2

REPORT INFORMATION
  Report Type: Spontaneous
  Country: US (occurrence: US)
  Receive Date: 20240417
  Receipt Date: 20240417
  Transmission Date: 20240716
  Serious: Yes (Hospitalization, Other)
  Sender: FDA-Public Use
  Company Number: US-PFIZER INC-202400047339

PATIENT
  Sex: Female

DRUGS (3)
  1. INFLECTRA [Suspect]
     Active Substance: INFLIXIMAB-DYYB
     Indication: Rheumatoid arthritis
     Dosage: UNK
     Dates: start: 202207, end: 202207
  2. METHOTREXATE SODIUM [Suspect]
     Active Substance: METHOTREXATE SODIUM
     Dosage: UNK
  3. FOLIC ACID [Suspect]
     Active Substance: FOLIC ACID
     Dosage: UNK

REACTIONS (7)
  - Cerebral haemorrhage [Unknown]
  - Renal cell carcinoma [Unknown]
  - Cerebrovascular accident [Unknown]
  - Seizure [Unknown]
  - Ovarian cyst [Unknown]
  - Renal disorder [Unknown]
  - Fall [Unknown]
